FAERS Safety Report 9418330 (Version 1)
Quarter: 2013Q3

REPORT INFORMATION
  Report Type: Spontaneous
  Country: US (occurrence: US)
  Receive Date: 20130725
  Receipt Date: 20130725
  Transmission Date: 20140515
  Serious: No
  Sender: FDA-Public Use
  Company Number: US-009507513-1307USA013024

PATIENT
  Age: 22 Year
  Sex: Female
  Weight: 54.42 kg

DRUGS (1)
  1. IMPLANON [Suspect]
     Indication: CONTRACEPTION
     Dosage: UNK
     Route: 059
     Dates: start: 20120424

REACTIONS (5)
  - Dizziness [Unknown]
  - Vomiting [Unknown]
  - Menstruation irregular [Unknown]
  - Dysmenorrhoea [Unknown]
  - Weight decreased [Unknown]
